FAERS Safety Report 7224655-1 (Version None)
Quarter: 2011Q1

REPORT INFORMATION
  Report Type: 
  Country: None (occurrence: None)
  Receive Date: 20110104
  Receipt Date: 20101220
  Transmission Date: 20110831
  Serious: Yes (Death)
  Sender: FDA-Public Use
  Company Number: 1000017898

PATIENT
  Age: 66 Year
  Sex: Female
  Weight: 56 kg

DRUGS (6)
  1. INDOMET (INDOMETACIN) (INDOMETACIN) [Concomitant]
  2. EFEROX (LEVOTHYROXINE SODIUM (LEVOTHYROXINE SODIUM) [Concomitant]
  3. THYBON (LIOTHYRONINE HYDROCHLORIDE) (LIOTHYRONINE) [Concomitant]
  4. MEMANTINE [Suspect]
     Indication: DEMENTIA ALZHEIMER'S TYPE
     Dosage: 20 MG (20 MG, 1 IN 1 D), ORAL, 5 MG (5 MG, 1 IN 1 D), ORAL
     Route: 046
     Dates: start: 20100510
  5. MEMANTINE [Suspect]
     Indication: DEMENTIA ALZHEIMER'S TYPE
     Dosage: 20 MG (20 MG, 1 IN 1 D), ORAL, 5 MG (5 MG, 1 IN 1 D), ORAL
     Route: 046
     Dates: start: 20100610
  6. PANTOPRAZOLE SODIUM (PANTOPRAZOLE SODIUM) (PANTOPRAZOLE SODIUM) [Concomitant]

REACTIONS (1)
  - CARDIAC FAILURE [None]
